FAERS Safety Report 18764067 (Version 5)
Quarter: 2022Q1

REPORT INFORMATION
  Report Type: Report from Study
  Country: US (occurrence: US)
  Receive Date: 20210120
  Receipt Date: 20220315
  Transmission Date: 20220423
  Serious: Yes (Other)
  Sender: FDA-Public Use
  Company Number: US-TAKEDA-US202026947

PATIENT
  Sex: Female

DRUGS (1)
  1. HUMAN IMMUNOGLOBULIN G [Suspect]
     Active Substance: HUMAN IMMUNOGLOBULIN G
     Indication: Primary immunodeficiency syndrome
     Dosage: UNK
     Route: 042

REACTIONS (12)
  - Gallbladder disorder [Unknown]
  - Depression [Unknown]
  - Fatigue [Unknown]
  - Insomnia [Unknown]
  - Ear infection [Unknown]
  - Sinus disorder [Unknown]
  - Bronchitis [Unknown]
  - Limb injury [Unknown]
  - Asthma [Recovering/Resolving]
  - Pulmonary mass [Unknown]
  - Oxygen saturation decreased [Unknown]
  - Product dose omission issue [Unknown]
